FAERS Safety Report 5808970-1 (Version None)
Quarter: 2008Q3

REPORT INFORMATION
  Report Type: 
  Country: None (occurrence: None)
  Receive Date: 20080714
  Receipt Date: 20080709
  Transmission Date: 20090109
  Serious: Yes (Hospitalization)
  Sender: FDA-Public Use
  Company Number: A0736726A

PATIENT
  Sex: Male

DRUGS (14)
  1. ADVAIR DISKUS 100/50 [Suspect]
     Indication: CHRONIC OBSTRUCTIVE PULMONARY DISEASE
     Dosage: 1PUFF TWICE PER DAY
     Route: 055
  2. SULFAMETHOXAZOLE AND TRIMETHOPRIM [Suspect]
     Indication: INFECTION PROPHYLAXIS
     Dosage: 1TAB TWICE PER DAY
     Route: 048
     Dates: start: 20080201, end: 20080201
  3. RANBEX [Suspect]
     Indication: INFECTION PROPHYLAXIS
     Dosage: 500MG THREE TIMES PER DAY
     Route: 048
     Dates: start: 20071101, end: 20071101
  4. SPIRIVA [Suspect]
     Indication: CHRONIC OBSTRUCTIVE PULMONARY DISEASE
  5. PREDNISONE TAB [Concomitant]
  6. IMDUR [Concomitant]
  7. PROCARDIA [Concomitant]
  8. TOPROL-XL [Concomitant]
  9. PROSCAR [Concomitant]
  10. DONNATAL [Concomitant]
  11. LIBRAX [Concomitant]
  12. NEXIUM [Concomitant]
  13. VYTORIN [Concomitant]
  14. PROAIR HFA [Concomitant]

REACTIONS (8)
  - BRONCHITIS [None]
  - COUGH [None]
  - DIZZINESS [None]
  - IRITIS [None]
  - KERATITIS [None]
  - LUNG INFECTION [None]
  - OEDEMA PERIPHERAL [None]
  - RETINAL DETACHMENT [None]
